FAERS Safety Report 9460484 (Version 1)
Quarter: 2013Q3

REPORT INFORMATION
  Report Type: Spontaneous
  Country: US (occurrence: US)
  Receive Date: 20130815
  Receipt Date: 20130815
  Transmission Date: 20140515
  Serious: Yes (Other)
  Sender: FDA-Public Use
  Company Number: US-UCBSA-084671

PATIENT
  Age: 55 Year
  Sex: Female
  Weight: 120 kg

DRUGS (8)
  1. CIMZIA [Suspect]
     Indication: RHEUMATOID ARTHRITIS
     Dosage: THEN ONCE IN ONE MONTH
     Dates: start: 20130206, end: 2013
  2. CIMZIA [Suspect]
     Indication: RHEUMATOID ARTHRITIS
     Dosage: NUMBER OF DOSES 4 OR 5, THEN EVERY 1 MONTH
     Dates: start: 2013, end: 20130406
  3. NUVIGAL [Concomitant]
     Indication: FATIGUE
     Dosage: STRENGHT 250 MG, ONCE
     Dates: start: 2011
  4. CELEBREX [Concomitant]
     Indication: ARTHRITIS
     Dosage: 1 TABLET BID, DOSE: 200
     Dates: start: 2013, end: 20130720
  5. PRAVACHOL [Concomitant]
  6. HYDROCHLOROTHIAZIDE [Concomitant]
     Indication: HYPERTENSION
     Dosage: STRENGTH 25 MG, ONCE
     Dates: start: 20130219
  7. XANAX [Concomitant]
     Dosage: STRENGTH 0.25 MG PRN
  8. LIPITOR [Concomitant]
     Indication: BLOOD CHOLESTEROL
     Dosage: DOSE: 20, ONCE
     Dates: start: 201306

REACTIONS (7)
  - Chest discomfort [Unknown]
  - Headache [Recovered/Resolved]
  - Migraine [Recovered/Resolved]
  - Pyrexia [Recovered/Resolved]
  - Feeling jittery [Recovered/Resolved]
  - Carpal tunnel syndrome [Recovered/Resolved]
  - Hypertension [Unknown]
